FAERS Safety Report 4749604-7 (Version None)
Quarter: 2005Q3

REPORT INFORMATION
  Report Type: 
  Country: None (occurrence: None)
  Receive Date: 20050819
  Receipt Date: 20050819
  Transmission Date: 20060218
  Serious: Yes (Other)
  Sender: FDA-Public Use
  Company Number: None

PATIENT
  Age: 52 Year
  Sex: Male
  Weight: 120.2032 kg

DRUGS (1)
  1. MIRAPEX [Suspect]
     Indication: RESTLESS LEGS SYNDROME
     Dosage: 6 TABLETS BY MOUTH  DAILY
     Route: 048
     Dates: start: 19980801, end: 20050620

REACTIONS (8)
  - ABNORMAL BEHAVIOUR [None]
  - DIABETES MELLITUS [None]
  - DIVORCED [None]
  - GAMBLING [None]
  - HYPERPHAGIA [None]
  - IMPAIRED WORK ABILITY [None]
  - MARITAL PROBLEM [None]
  - WEIGHT INCREASED [None]
